FAERS Safety Report 4801709-8 (Version None)
Quarter: 2005Q4

REPORT INFORMATION
  Report Type: 
  Country: None (occurrence: None)
  Receive Date: 20051018
  Receipt Date: 20051007
  Transmission Date: 20060501
  Serious: Yes (Other)
  Sender: FDA-Public Use
  Company Number: US-JNJFOC-20051001512

PATIENT

DRUGS (2)
  1. CISAPRIDE [Suspect]
     Dosage: DAYS 1, 2, 25 THROUGH 29.
  2. CISAPRIDE [Suspect]
     Indication: DRUG USE FOR UNKNOWN INDICATION
     Dosage: DAY 3 AND 30.

REACTIONS (1)
  - ELECTROCARDIOGRAM QT CORRECTED INTERVAL PROLONGED [None]
